FAERS Safety Report 8408748-9 (Version None)
Quarter: 2012Q2

REPORT INFORMATION
  Report Type: 
  Country: None (occurrence: None)
  Receive Date: 20120604
  Receipt Date: 20120529
  Transmission Date: 20120825
  Serious: Yes (Hospitalization, Other)
  Sender: FDA-Public Use
  Company Number: PHHY2012JP035460

PATIENT
  Sex: Female

DRUGS (6)
  1. SYMBICORT [Concomitant]
     Dosage: 4 DF, UNK
     Dates: start: 20110701
  2. ADVAIR DISKUS 100/50 [Concomitant]
     Dates: end: 20110701
  3. DIOVAN [Suspect]
     Indication: HYPERTENSION
     Dosage: 40 MG, DAILY
     Route: 048
     Dates: start: 20110101
  4. DEPAS [Concomitant]
     Dosage: 1 MG, UNK
     Route: 048
     Dates: start: 20110701
  5. STEROID [Concomitant]
  6. DIOVAN [Suspect]
     Dosage: 40 MG, DAILY
     Route: 048
     Dates: start: 20110629, end: 20120518

REACTIONS (3)
  - WRONG TECHNIQUE IN DRUG USAGE PROCESS [None]
  - PANCYTOPENIA [None]
  - ASTHMA [None]
